FAERS Safety Report 5093628-X (Version None)
Quarter: 2006Q3

REPORT INFORMATION
  Report Type: 
  Country: None (occurrence: None)
  Receive Date: 20060829
  Receipt Date: 20060815
  Transmission Date: 20061208
  Serious: Yes (Hospitalization, Other)
  Sender: FDA-Public Use
  Company Number: 06-034

PATIENT
  Age: 68 Year
  Sex: Female

DRUGS (1)
  1. ESGIC-PLUS [Suspect]
     Indication: MIGRAINE
     Dosage: 1 TABLET, EVERY 6 H
     Dates: start: 20050701, end: 20060725

REACTIONS (4)
  - CONDITION AGGRAVATED [None]
  - DRUG INEFFECTIVE [None]
  - MIGRAINE [None]
  - NAUSEA [None]
